FAERS Safety Report 11332495 (Version 1)
Quarter: 2015Q3

REPORT INFORMATION
  Report Type: Spontaneous
  Country: US (occurrence: US)
  Receive Date: 20150803
  Receipt Date: 20150803
  Transmission Date: 20151125
  Serious: Yes (Other)
  Sender: FDA-Public Use
  Company Number: US-ELI_LILLY_AND_COMPANY-US200810005632

PATIENT
  Sex: Female
  Weight: 49.89 kg

DRUGS (1)
  1. ZYPREXA [Suspect]
     Active Substance: OLANZAPINE
     Indication: BIPOLAR DISORDER
     Dates: start: 2004

REACTIONS (5)
  - Weight increased [Unknown]
  - Food craving [Unknown]
  - Salt craving [Unknown]
  - Nausea [Unknown]
  - Dry mouth [Unknown]
